FAERS Safety Report 24810373 (Version 1)
Quarter: 2025Q1

REPORT INFORMATION
  Report Type: Spontaneous
  Country: CN (occurrence: CN)
  Receive Date: 20250106
  Receipt Date: 20250106
  Transmission Date: 20250409
  Serious: Yes (Other)
  Sender: PAREXEL
  Company Number: CN-SHANGHAI JUNSHI BIOSCIENCES CO., LTD.-CN2024012571

PATIENT

DRUGS (9)
  1. TORIPALIMAB [Suspect]
     Active Substance: TORIPALIMAB
     Indication: Bladder transitional cell carcinoma stage IV
     Route: 041
     Dates: start: 20241217, end: 20241217
  2. TORIPALIMAB [Suspect]
     Active Substance: TORIPALIMAB
     Indication: Metastases to bone
  3. CARBOPLATIN [Suspect]
     Active Substance: CARBOPLATIN
     Indication: Bladder transitional cell carcinoma stage IV
     Route: 041
     Dates: start: 20241217, end: 20241217
  4. CARBOPLATIN [Suspect]
     Active Substance: CARBOPLATIN
     Indication: Metastases to bone
  5. PACLITAXEL [Suspect]
     Active Substance: PACLITAXEL
     Indication: Bladder transitional cell carcinoma stage IV
     Route: 041
     Dates: start: 20241217, end: 20241217
  6. PACLITAXEL [Suspect]
     Active Substance: PACLITAXEL
     Indication: Metastases to bone
  7. SODIUM CHLORIDE [Concomitant]
     Active Substance: SODIUM CHLORIDE
     Indication: Medication dilution
     Route: 041
     Dates: start: 20241217, end: 20241217
  8. SODIUM CHLORIDE [Concomitant]
     Active Substance: SODIUM CHLORIDE
     Route: 041
     Dates: start: 20241217, end: 20241217
  9. DEXTROSE [Concomitant]
     Active Substance: DEXTROSE MONOHYDRATE
     Indication: Medication dilution
     Route: 041
     Dates: start: 20241217, end: 20241217

REACTIONS (1)
  - Myelosuppression [Recovering/Resolving]

NARRATIVE: CASE EVENT DATE: 20241224
